FAERS Safety Report 5912431-9 (Version None)
Quarter: 2008Q4

REPORT INFORMATION
  Report Type: 
  Country: None (occurrence: None)
  Receive Date: 20081008
  Receipt Date: 20081003
  Transmission Date: 20090506
  Serious: Yes (Hospitalization)
  Sender: FDA-Public Use
  Company Number: IN-ABBOTT-08R-078-0479748-00

PATIENT
  Weight: 1.5 kg

DRUGS (1)
  1. BERACTANT [Suspect]
     Indication: NEONATAL RESPIRATORY DISTRESS SYNDROME
     Route: 007
     Dates: start: 20080810

REACTIONS (1)
  - PNEUMONITIS [None]
